FAERS Safety Report 12492654 (Version 1)
Quarter: 2016Q2

REPORT INFORMATION
  Report Type: Spontaneous
  Country: FR (occurrence: FR)
  Receive Date: 20160623
  Receipt Date: 20160623
  Transmission Date: 20160815
  Serious: Yes (Hospitalization)
  Sender: FDA-Public Use
  Company Number: FR-SA-2016SA114709

PATIENT
  Age: 72 Year
  Sex: Female

DRUGS (4)
  1. CORTANCYL [Concomitant]
     Active Substance: PREDNISONE
  2. RIMIFON [Suspect]
     Active Substance: ISONIAZID
     Route: 048
     Dates: start: 20160229, end: 20160316
  3. RIFADINE [Suspect]
     Active Substance: RIFAMPIN
     Route: 048
     Dates: start: 20160229, end: 20160316
  4. RIFINAH [Suspect]
     Active Substance: ISONIAZID\RIFAMPIN
     Route: 048
     Dates: start: 20160229, end: 20160316

REACTIONS (3)
  - Pyrexia [Recovered/Resolved]
  - Rash [Recovered/Resolved]
  - Cell death [Unknown]

NARRATIVE: CASE EVENT DATE: 20160315
